FAERS Safety Report 12065178 (Version 1)
Quarter: 2016Q1

REPORT INFORMATION
  Report Type: Spontaneous
  Country: US (occurrence: None)
  Receive Date: 20160210
  Receipt Date: 20160210
  Transmission Date: 20160526
  Serious: Yes (Death)
  Sender: FDA-Public Use
  Company Number: None

PATIENT
  Age: 45 Year
  Sex: Female
  Weight: 122 kg

DRUGS (1)
  1. LISINOPRIL 20MG UNKNOWN [Suspect]
     Active Substance: LISINOPRIL
     Indication: HYPERTENSION
     Route: 048

REACTIONS (7)
  - Swollen tongue [None]
  - Cardiac arrest [None]
  - Abdominal pain [None]
  - Vomiting [None]
  - Diarrhoea [None]
  - Hypertension [None]
  - Nausea [None]

NARRATIVE: CASE EVENT DATE: 20160101
